FAERS Safety Report 21533583 (Version 2)
Quarter: 2022Q4

REPORT INFORMATION
  Report Type: Spontaneous
  Country: US (occurrence: US)
  Receive Date: 20221101
  Receipt Date: 20221104
  Transmission Date: 20230113
  Serious: No
  Sender: FDA-Public Use
  Company Number: US-BRISTOL-MYERS SQUIBB COMPANY-2022-128396

PATIENT
  Age: 83 Year
  Sex: Female
  Weight: 78.47 kg

DRUGS (1)
  1. INREBIC [Suspect]
     Active Substance: FEDRATINIB HYDROCHLORIDE
     Indication: Myelofibrosis
     Route: 048
     Dates: start: 20220812

REACTIONS (4)
  - Asthenia [Unknown]
  - Fatigue [Unknown]
  - Pain [Unknown]
  - Vomiting [Recovering/Resolving]
